FAERS Safety Report 16674548 (Version 1)
Quarter: 2019Q3

REPORT INFORMATION
  Report Type: Spontaneous
  Country: US (occurrence: US)
  Receive Date: 20190806
  Receipt Date: 20190806
  Transmission Date: 20191004
  Serious: No
  Sender: FDA-Public Use
  Company Number: US-TEVA-2019-US-1087196

PATIENT
  Age: 5 Decade
  Sex: Female

DRUGS (20)
  1. PREDNISONE. [Suspect]
     Active Substance: PREDNISONE
     Indication: TRIGEMINAL NEURALGIA
     Route: 065
  2. PREGABALIN. [Suspect]
     Active Substance: PREGABALIN
     Indication: TRIGEMINAL NEURALGIA
     Route: 065
  3. CAPSAICIN. [Suspect]
     Active Substance: CAPSAICIN
     Indication: TRIGEMINAL NEURALGIA
     Route: 061
  4. PAROXETINE. [Suspect]
     Active Substance: PAROXETINE
     Indication: TRIGEMINAL NEURALGIA
     Route: 065
  5. KETOROLAC [Suspect]
     Active Substance: KETOROLAC TROMETHAMINE
     Indication: TRIGEMINAL NEURALGIA
     Route: 065
  6. TOPIRAMATE. [Suspect]
     Active Substance: TOPIRAMATE
     Indication: TRIGEMINAL NEURALGIA
     Route: 065
  7. AMITRIPTYLINE [Suspect]
     Active Substance: AMITRIPTYLINE
     Indication: TRIGEMINAL NEURALGIA
     Route: 065
  8. LIDOCAINE. [Suspect]
     Active Substance: LIDOCAINE
     Indication: TRIGEMINAL NEURALGIA
     Route: 061
  9. PHENYTOIN. [Suspect]
     Active Substance: PHENYTOIN
     Indication: TRIGEMINAL NEURALGIA
     Route: 065
  10. LAMOTRIGINE. [Suspect]
     Active Substance: LAMOTRIGINE
     Indication: TRIGEMINAL NEURALGIA
     Route: 065
  11. FLUOXETINEQ [Suspect]
     Active Substance: FLUOXETINE HYDROCHLORIDE
     Indication: TRIGEMINAL NEURALGIA
     Route: 065
  12. OXYCODONE [Suspect]
     Active Substance: OXYCODONE
     Indication: TRIGEMINAL NEURALGIA
     Dosage: UPTO 60MG, DAILY
     Route: 065
  13. DIVALPROEX SODIUM. [Suspect]
     Active Substance: DIVALPROEX SODIUM
     Indication: TRIGEMINAL NEURALGIA
     Route: 065
  14. MORPHINE [Suspect]
     Active Substance: MORPHINE
     Indication: TRIGEMINAL NEURALGIA
     Route: 065
  15. SUMATRIPTAN. [Suspect]
     Active Substance: SUMATRIPTAN
     Indication: TRIGEMINAL NEURALGIA
     Route: 065
  16. RIZATRIPTAN. [Suspect]
     Active Substance: RIZATRIPTAN
     Indication: TRIGEMINAL NEURALGIA
     Route: 065
  17. CARBAMAZEPINE. [Suspect]
     Active Substance: CARBAMAZEPINE
     Indication: TRIGEMINAL NEURALGIA
     Route: 065
  18. MILNACIPRAN [Suspect]
     Active Substance: MILNACIPRAN
     Indication: TRIGEMINAL NEURALGIA
     Route: 065
  19. GABAPENTIN. [Suspect]
     Active Substance: GABAPENTIN
     Indication: TRIGEMINAL NEURALGIA
     Dosage: UPTO 2700MG, DAILY
     Route: 065
  20. MEPERIDINE [Suspect]
     Active Substance: MEPERIDINE
     Indication: TRIGEMINAL NEURALGIA
     Route: 065

REACTIONS (4)
  - Therapeutic product effect variable [Unknown]
  - Treatment failure [Unknown]
  - Dizziness [Unknown]
  - Ataxia [Unknown]
